FAERS Safety Report 6856929-8 (Version None)
Quarter: 2010Q3

REPORT INFORMATION
  Report Type: 
  Country: None (occurrence: None)
  Receive Date: 20100714
  Receipt Date: 20100630
  Transmission Date: 20110219
  Serious: Yes (Hospitalization)
  Sender: FDA-Public Use
  Company Number: LEO-2010-00491

PATIENT
  Age: 76 Year
  Sex: Female
  Weight: 61 kg

DRUGS (2)
  1. INNOHEP [Suspect]
     Indication: VITAMIN K
     Dosage: 10000 IU (10000 IU, 1 IN 1 D), SUBUCTANEOUS
     Route: 058
     Dates: start: 20100604, end: 20100605
  2. PREVISCAN (FLUINDIONE) [Concomitant]

REACTIONS (6)
  - ABDOMINAL PAIN [None]
  - DIARRHOEA [None]
  - NAUSEA [None]
  - OFF LABEL USE [None]
  - PRESYNCOPE [None]
  - VOMITING [None]
